FAERS Safety Report 9473981 (Version 1)
Quarter: 2013Q3

REPORT INFORMATION
  Report Type: Spontaneous
  Country: US (occurrence: US)
  Receive Date: 20130823
  Receipt Date: 20130823
  Transmission Date: 20140515
  Serious: Yes (Other)
  Sender: FDA-Public Use
  Company Number: US-JNJFOC-20130808468

PATIENT
  Age: 40 Year
  Sex: Female
  Weight: 68.04 kg

DRUGS (3)
  1. INVEGA SUSTENNA [Suspect]
     Indication: SCHIZOPHRENIA
     Route: 030
     Dates: start: 20130619, end: 20130619
  2. INVEGA SUSTENNA [Suspect]
     Indication: SCHIZOPHRENIA
     Route: 030
     Dates: start: 201306, end: 201306
  3. ARMOUR THYROID [Concomitant]
     Indication: THYROIDITIS
     Dosage: 120MG IN THE MORNING AND 60MG IN THE AFTERNOON
     Route: 048
     Dates: start: 2008

REACTIONS (6)
  - Dysarthria [Not Recovered/Not Resolved]
  - Grip strength decreased [Not Recovered/Not Resolved]
  - Balance disorder [Not Recovered/Not Resolved]
  - Asthenia [Not Recovered/Not Resolved]
  - Drooling [Not Recovered/Not Resolved]
  - Adverse event [Unknown]
